FAERS Safety Report 4947636-7 (Version None)
Quarter: 2006Q1

REPORT INFORMATION
  Report Type: 
  Country: None (occurrence: None)
  Receive Date: 20060320
  Receipt Date: 20060308
  Transmission Date: 20060701
  Serious: Yes (Hospitalization, Other)
  Sender: FDA-Public Use
  Company Number: US-JNJFOC-20051200854

PATIENT
  Sex: Female
  Weight: 71.22 kg

DRUGS (9)
  1. RISPERDAL [Suspect]
     Indication: SCHIZOPHRENIA
     Route: 048
  2. RISPERDAL [Suspect]
     Indication: ALCOHOLIC PSYCHOSIS
     Route: 048
  3. DURAGESIC-100 [Concomitant]
     Indication: PAIN
  4. DILAUDID [Concomitant]
     Indication: PAIN
     Route: 048
  5. XANAX [Concomitant]
  6. ZESTRIL [Concomitant]
  7. TRAZODONE [Concomitant]
  8. CELEXA [Concomitant]
  9. VISTARIL [Concomitant]

REACTIONS (2)
  - HEPATIC NEOPLASM MALIGNANT [None]
  - PANCREATITIS [None]
